FAERS Safety Report 20853747 (Version 1)
Quarter: 2022Q2

REPORT INFORMATION
  Report Type: Spontaneous
  Country: US (occurrence: US)
  Receive Date: 20220520
  Receipt Date: 20220520
  Transmission Date: 20220721
  Serious: Yes (Hospitalization)
  Sender: FDA-Public Use
  Company Number: US-R-PHARM US LLC-2022RPM00008

PATIENT
  Age: 72 Year
  Sex: Female

DRUGS (1)
  1. IXEMPRA [Suspect]
     Active Substance: IXABEPILONE
     Indication: Breast cancer female
     Dosage: 35 MG, 1X/WEEK
     Dates: start: 20220502, end: 20220502

REACTIONS (1)
  - Ascites [Not Recovered/Not Resolved]

NARRATIVE: CASE EVENT DATE: 20220501
